FAERS Safety Report 6978849-0 (Version None)
Quarter: 2010Q3

REPORT INFORMATION
  Report Type: 
  Country: None (occurrence: None)
  Receive Date: 20100913
  Receipt Date: 20100902
  Transmission Date: 20110219
  Serious: Yes (Other)
  Sender: FDA-Public Use
  Company Number: US-SANOFI-AVENTIS-2010SA053887

PATIENT
  Age: 81 Year
  Sex: Male

DRUGS (2)
  1. LANTUS [Suspect]
     Dosage: DOSE:40 UNIT(S)
     Route: 058
     Dates: start: 20090101
  2. SOLOSTAR [Suspect]
     Route: 058
     Dates: start: 20090101

REACTIONS (2)
  - CONDITION AGGRAVATED [None]
  - RENAL FAILURE [None]
